FAERS Safety Report 7229336-6 (Version None)
Quarter: 2011Q1

REPORT INFORMATION
  Report Type: 
  Country: None (occurrence: None)
  Receive Date: 20110117
  Receipt Date: 20110111
  Transmission Date: 20110831
  Serious: Yes (Death, Life-Threatening, Other)
  Sender: FDA-Public Use
  Company Number: PL-CELGENEUS-129-50794-10121536

PATIENT
  Sex: Male

DRUGS (2)
  1. VIDAZA [Suspect]
     Route: 058
     Dates: start: 20100920, end: 20101224
  2. VIDAZA [Suspect]
     Route: 058
     Dates: start: 20100401, end: 20100829

REACTIONS (6)
  - ANAEMIA [None]
  - LUNG ABSCESS [None]
  - SKELETAL INJURY [None]
  - MULTI-ORGAN FAILURE [None]
  - THROMBOCYTOPENIA [None]
  - NEUROTOXICITY [None]
